FAERS Safety Report 25749997 (Version 1)
Quarter: 2025Q3

REPORT INFORMATION
  Report Type: Spontaneous
  Country: EU (occurrence: EU)
  Receive Date: 20250902
  Receipt Date: 20250902
  Transmission Date: 20251020
  Serious: Yes (Other)
  Sender: IPSEN BIOPHARMACEUTICALS, INC.
  Company Number: EU-IPSEN Group, Research and Development-2025-21284

PATIENT
  Sex: Female

DRUGS (2)
  1. ELAFIBRANOR [Suspect]
     Active Substance: ELAFIBRANOR
     Indication: Primary biliary cholangitis
  2. URSODIOL [Concomitant]
     Active Substance: URSODIOL
     Indication: Primary biliary cholangitis

REACTIONS (1)
  - Transaminases increased [Unknown]
